FAERS Safety Report 6917245-9 (Version None)
Quarter: 2010Q3

REPORT INFORMATION
  Report Type: 
  Country: None (occurrence: None)
  Receive Date: 20100805
  Receipt Date: 20100726
  Transmission Date: 20110219
  Serious: Yes (Other)
  Sender: FDA-Public Use
  Company Number: LEO-2010-00668

PATIENT
  Age: 65 Year
  Sex: Male

DRUGS (1)
  1. TACLONEX [Suspect]
     Indication: RASH
     Dosage: 2 IN 1 D

REACTIONS (4)
  - ANGLE CLOSURE GLAUCOMA [None]
  - BLISTER [None]
  - DRUG HYPERSENSITIVITY [None]
  - OFF LABEL USE [None]
